FAERS Safety Report 17803233 (Version 6)
Quarter: 2020Q3

REPORT INFORMATION
  Report Type: Spontaneous
  Country: CN (occurrence: CN)
  Receive Date: 20200519
  Receipt Date: 20200902
  Transmission Date: 20201104
  Serious: Yes (Other)
  Sender: FDA-Public Use
  Company Number: CN-CELGENEUS-CHN-20200504327

PATIENT
  Age: 69 Year
  Sex: Male
  Weight: 62 kg

DRUGS (17)
  1. ABRAXANE [Suspect]
     Active Substance: PACLITAXEL
     Dosage: 121.5 MILLIGRAM
     Route: 041
     Dates: start: 20200611, end: 20200611
  2. CARBOPLATIN. [Suspect]
     Active Substance: CARBOPLATIN
     Dosage: 310.5 MILLIGRAM
     Route: 041
     Dates: start: 20200527, end: 20200527
  3. ABRAXANE [Suspect]
     Active Substance: PACLITAXEL
     Dosage: 158 MILLIGRAM
     Route: 041
     Dates: start: 20191227, end: 20191227
  4. ABRAXANE [Suspect]
     Active Substance: PACLITAXEL
     Dosage: 164 MILLIGRAM
     Route: 041
     Dates: start: 20200425, end: 20200425
  5. ABRAXANE [Suspect]
     Active Substance: PACLITAXEL
     Dosage: 121 MILLIGRAM
     Route: 041
     Dates: start: 20200604, end: 20200604
  6. CARBOPLATIN. [Suspect]
     Active Substance: CARBOPLATIN
     Dosage: 434 MILLIGRAM
     Route: 041
     Dates: start: 20200108, end: 20200108
  7. SERPLULIMAB. [Suspect]
     Active Substance: SERPLULIMAB
     Dosage: 4.5 MILLIGRAM/KILOGRAM
     Route: 041
     Dates: start: 20200723, end: 20200723
  8. CARBOPLATIN. [Suspect]
     Active Substance: CARBOPLATIN
     Dosage: 408 MILLIGRAM
     Route: 041
     Dates: start: 20200425, end: 20200425
  9. SERPLULIMAB. [Suspect]
     Active Substance: SERPLULIMAB
     Dosage: 4.5 MILLIGRAM/KILOGRAM
     Route: 041
     Dates: start: 20200630, end: 20200630
  10. SERPLULIMAB. [Suspect]
     Active Substance: SERPLULIMAB
     Dosage: 4.5 MILLIGRAM/KILOGRAM
     Route: 041
     Dates: start: 20200814
  11. ABRAXANE [Suspect]
     Active Substance: PACLITAXEL
     Indication: NON-SMALL CELL LUNG CANCER
     Dosage: 158 MILLIGRAM
     Route: 041
     Dates: start: 20191219, end: 20191219
  12. CARBOPLATIN. [Suspect]
     Active Substance: CARBOPLATIN
     Indication: NON-SMALL CELL LUNG CANCER
     Dosage: 404 MILLIGRAM
     Route: 041
     Dates: start: 20191219, end: 20191219
  13. SERPLULIMAB. [Suspect]
     Active Substance: SERPLULIMAB
     Indication: NON-SMALL CELL LUNG CANCER
     Dosage: 4.5 MILLIGRAM/KILOGRAM
     Route: 041
     Dates: start: 20191219, end: 20200425
  14. ABRAXANE [Suspect]
     Active Substance: PACLITAXEL
     Dosage: 161 MILLIGRAM
     Route: 041
     Dates: start: 20200108, end: 20200108
  15. ABRAXANE [Suspect]
     Active Substance: PACLITAXEL
     Dosage: 121 MILLIGRAM
     Route: 041
     Dates: start: 20200119, end: 20200119
  16. ABRAXANE [Suspect]
     Active Substance: PACLITAXEL
     Dosage: 121 MILLIGRAM
     Route: 041
     Dates: start: 20200527, end: 20200527
  17. SERPLULIMAB. [Suspect]
     Active Substance: SERPLULIMAB
     Dosage: 4.5 MILLIGRAM/KILOGRAM
     Route: 041
     Dates: start: 20200527, end: 20200527

REACTIONS (1)
  - Myelosuppression [Recovering/Resolving]

NARRATIVE: CASE EVENT DATE: 20200102
